FAERS Safety Report 10479491 (Version 1)
Quarter: 2014Q3

REPORT INFORMATION
  Report Type: Report from Study
  Country: US (occurrence: US)
  Receive Date: 20140926
  Receipt Date: 20140926
  Transmission Date: 20150326
  Serious: Yes (Other)
  Sender: FDA-Public Use
  Company Number: US-ALEXION PHARMACEUTICALS INC-A201102481

PATIENT
  Sex: Male

DRUGS (2)
  1. SOLIRIS [Suspect]
     Active Substance: ECULIZUMAB
     Indication: PAROXYSMAL NOCTURNAL HAEMOGLOBINURIA
     Dosage: UNK
     Route: 042
  2. EXJADE [Concomitant]
     Active Substance: DEFERASIROX
     Indication: SERUM FERRITIN INCREASED

REACTIONS (7)
  - Haemolysis [Recovering/Resolving]
  - Infection [Unknown]
  - Fatigue [Unknown]
  - Haemoglobin decreased [Unknown]
  - Chronic myeloid leukaemia [Unknown]
  - Transfusion [Unknown]
  - Biopsy bone marrow [Unknown]
